FAERS Safety Report 19310519 (Version 3)
Quarter: 2021Q2

REPORT INFORMATION
  Report Type: Spontaneous
  Country: US (occurrence: US)
  Receive Date: 20210526
  Receipt Date: 20210617
  Transmission Date: 20210717
  Serious: Yes (Hospitalization, Other)
  Sender: FDA-Public Use
  Company Number: US-PFIZER INC-2021576679

PATIENT
  Age: 80 Year
  Sex: Female

DRUGS (1)
  1. XELJANZ XR [Suspect]
     Active Substance: TOFACITINIB CITRATE
     Dosage: 11 MG

REACTIONS (7)
  - Herpes zoster [Unknown]
  - Femur fracture [Unknown]
  - Movement disorder [Unknown]
  - Hip fracture [Unknown]
  - Lower limb fracture [Unknown]
  - Fall [Unknown]
  - Visual impairment [Unknown]
